FAERS Safety Report 8488021 (Version 6)
Quarter: 2013Q1

REPORT INFORMATION
  Report Type: Spontaneous
  Country: US (occurrence: US)
  Receive Date: 20120402
  Receipt Date: 20130326
  Transmission Date: 20140127
  Serious: No
  Sender: FDA-Public Use
  Company Number: US-PFIZER INC-2012078952

PATIENT
  Age: 54 Year
  Sex: Female
  Weight: 45.35 kg

DRUGS (5)
  1. ZOLOFT [Suspect]
     Indication: DEPRESSION
     Dosage: 50 MG, DAILY
     Route: 048
     Dates: start: 1992
  2. ZOLOFT [Suspect]
     Dosage: 100 MG, DAILY
     Route: 048
  3. ZOLOFT [Suspect]
     Dosage: UNK
     Route: 048
  4. ZOLOFT [Suspect]
     Dosage: 50 MG (SPLITTING THE 100MG TABLETS INTO HALF SO AS TO TAKE 50MG)
     Route: 048
     Dates: start: 20120305
  5. ESTRACE [Concomitant]
     Indication: HORMONE REPLACEMENT THERAPY
     Dosage: 1 MG, DAILY
     Route: 048
     Dates: start: 1991

REACTIONS (3)
  - Sensory disturbance [Recovered/Resolved]
  - Anaemia [Unknown]
  - Drug ineffective [Recovered/Resolved]
